FAERS Safety Report 9790225 (Version 1)
Quarter: 2013Q4

REPORT INFORMATION
  Report Type: Spontaneous
  Country: US (occurrence: US)
  Receive Date: 20131231
  Receipt Date: 20131231
  Transmission Date: 20140711
  Serious: Yes (Hospitalization)
  Sender: FDA-Public Use
  Company Number: US-ROCHE-1321880

PATIENT
  Age: 28 Year
  Sex: Female

DRUGS (10)
  1. PULMOZYME [Suspect]
     Indication: CYSTIC FIBROSIS
     Dosage: NEBULIZER
     Route: 055
  2. CEFTRIAXONE [Suspect]
     Indication: PRODUCT USED FOR UNKNOWN INDICATION
     Route: 065
  3. ZOSYN [Concomitant]
     Indication: PNEUMONIA
     Route: 041
     Dates: end: 20131220
  4. PREDNISONE [Concomitant]
     Dosage: TAKE FOR 10 DAYS
     Route: 048
     Dates: start: 20131211
  5. CREON [Concomitant]
     Indication: PANCREATIC ENZYMES
     Dosage: 4 PILLS WITH MEALS AND 2 PILLS WITH SNACKS
     Route: 048
  6. MUCINEX [Concomitant]
     Dosage: TAKE FOR 10 DAYS
     Route: 048
  7. ADVAIR [Concomitant]
     Dosage: 1 PUFF
     Route: 055
  8. FLONASE [Concomitant]
     Dosage: 1 SQUIRT EACH NOSTRIL
     Route: 045
  9. ALBUTEROL [Concomitant]
     Dosage: NEBULIZER
     Route: 055
  10. ZYVOX [Concomitant]
     Dosage: TAKE FOR 16 DAYS
     Route: 048

REACTIONS (12)
  - Pneumonia [Unknown]
  - Drug dose omission [Unknown]
  - Haemoptysis [Unknown]
  - Bronchial secretion retention [Unknown]
  - Increased bronchial secretion [Unknown]
  - Bacterial test positive [Unknown]
  - Dysphonia [Unknown]
  - Choking [Unknown]
  - Malaise [Unknown]
  - Disability [Unknown]
  - Pharyngeal oedema [Unknown]
  - Fatigue [Unknown]
